FAERS Safety Report 4879563-8 (Version None)
Quarter: 2006Q1

REPORT INFORMATION
  Report Type: 
  Country: None (occurrence: None)
  Receive Date: 20060113
  Receipt Date: 20051206
  Transmission Date: 20060701
  Serious: Yes (Hospitalization)
  Sender: FDA-Public Use
  Company Number: 2005UW18441

PATIENT
  Age: 59 Year
  Sex: Female

DRUGS (19)
  1. CRESTOR [Suspect]
     Indication: HYPERLIPIDAEMIA
     Route: 048
  2. CRESTOR [Suspect]
     Route: 048
     Dates: start: 20051203
  3. TRICOR [Interacting]
     Dates: start: 20051019
  4. COUMADIN [Suspect]
  5. OMNICEF [Concomitant]
     Dates: start: 20051123
  6. GEMFIBROZIL [Concomitant]
     Dosage: INCLUDES USE ON 19-OCT-2005
  7. DRISDOL [Concomitant]
     Dates: start: 20051019
  8. COREG [Concomitant]
  9. SPIRONOLACTONE [Concomitant]
  10. ESTRADIOL PATCH [Concomitant]
  11. LASIX [Concomitant]
  12. DIGOXIN [Concomitant]
  13. POTASSIUM CHLORIDE [Concomitant]
  14. VIACTIVE CHEWS [Concomitant]
  15. SYNTHROID [Concomitant]
  16. ALEVE [Concomitant]
  17. STARLIX [Concomitant]
  18. FLONASE [Concomitant]
  19. FOSINOPRIL [Concomitant]

REACTIONS (6)
  - ACUTE PRERENAL FAILURE [None]
  - CELLULITIS [None]
  - COAGULOPATHY [None]
  - DRUG INTERACTION [None]
  - ECCHYMOSIS [None]
  - HAEMARTHROSIS [None]
